FAERS Safety Report 5659384-9 (Version None)
Quarter: 2008Q1

REPORT INFORMATION
  Report Type: 
  Country: None (occurrence: None)
  Receive Date: 20080311
  Receipt Date: 20080226
  Transmission Date: 20080703
  Serious: Yes (Hospitalization)
  Sender: FDA-Public Use
  Company Number: GB-RANBAXY-2008RR-13362

PATIENT

DRUGS (2)
  1. ACETAMINOPHEN [Suspect]
     Dosage: 80 DF, UNK
  2. DENZAPINE [Suspect]
     Indication: MAJOR DEPRESSION
     Dosage: UNK
     Route: 048
     Dates: start: 20080110, end: 20080131

REACTIONS (2)
  - SUICIDE ATTEMPT [None]
  - THROMBOCYTOPENIA [None]
